FAERS Safety Report 24967072 (Version 1)
Quarter: 2025Q1

REPORT INFORMATION
  Report Type: Spontaneous
  Country: US (occurrence: US)
  Receive Date: 20250213
  Receipt Date: 20250213
  Transmission Date: 20250408
  Serious: No
  Sender: BLUEPRINT MEDICINES
  Company Number: US-Blueprint Medicines Corporation-2025-AER-00272

PATIENT
  Age: 65 Year
  Sex: Female

DRUGS (7)
  1. AYVAKIT [Suspect]
     Active Substance: AVAPRITINIB
     Indication: Product used for unknown indication
     Route: 048
     Dates: start: 20250131
  2. ALLEGRA ALLERGY [Concomitant]
     Active Substance: FEXOFENADINE HYDROCHLORIDE
     Indication: Product used for unknown indication
     Route: 065
  3. Evenity Subcutaneous Solution [Concomitant]
     Indication: Product used for unknown indication
     Route: 058
  4. FAMOTIDINE [Concomitant]
     Active Substance: FAMOTIDINE
     Indication: Product used for unknown indication
     Route: 065
  5. FT IRON [Concomitant]
     Indication: Product used for unknown indication
     Route: 065
  6. PRONUTRIENTS CALCIUM + D3 [Concomitant]
     Indication: Product used for unknown indication
     Route: 065
  7. SM OMEGA-3 [Concomitant]
     Indication: Product used for unknown indication
     Route: 065

REACTIONS (1)
  - Brain fog [Not Recovered/Not Resolved]
